FAERS Safety Report 5226399-4 (Version None)
Quarter: 2006Q4

REPORT INFORMATION
  Report Type: 
  Country: None (occurrence: None)
  Receive Date: 20061201
  Receipt Date: 20061020
  Transmission Date: 20070319
  Serious: No
  Sender: FDA-Public Use
  Company Number: US200610004101

PATIENT
  Sex: Female

DRUGS (1)
  1. CYMBALTA [Suspect]
     Dates: start: 20060907, end: 20060911

REACTIONS (5)
  - ANOREXIA [None]
  - DELUSION [None]
  - DIZZINESS [None]
  - FALL [None]
  - SOMNOLENCE [None]
